FAERS Safety Report 10241665 (Version 1)
Quarter: 2014Q2

REPORT INFORMATION
  Report Type: Spontaneous
  Country: US (occurrence: None)
  Receive Date: 20140613
  Receipt Date: 20140613
  Transmission Date: 20141212
  Serious: Yes (Hospitalization)
  Sender: FDA-Public Use
  Company Number: UNT-2014-001673

PATIENT
  Age: 39 Year
  Sex: Female
  Weight: 130.1 kg

DRUGS (2)
  1. REMODULIN (TREPROSTINIL SODIUM) INJECTION, 2.5MG/ML [Suspect]
     Indication: PULMONARY ARTERIAL HYPERTENSION
     Dosage: 0.05 UG/KG/MIN,
     Route: 041
     Dates: start: 20120706
  2. WARFARIN (WARFARIN) [Concomitant]

REACTIONS (3)
  - Pneumonia [None]
  - Cough [None]
  - Rales [None]
